FAERS Safety Report 5333812-0 (Version None)
Quarter: 2007Q2

REPORT INFORMATION
  Report Type: 
  Country: None (occurrence: None)
  Receive Date: 20070524
  Receipt Date: 20070517
  Transmission Date: 20071010
  Serious: Yes (Hospitalization, Other)
  Sender: FDA-Public Use
  Company Number: US-ELI_LILLY_AND_COMPANY-US200705005392

PATIENT
  Age: 65 Year
  Sex: Female
  Weight: 122.45 kg

DRUGS (1)
  1. HUMALOG MIX 75/25 [Suspect]
     Indication: DIABETES MELLITUS NON-INSULIN-DEPENDENT
     Dates: start: 19970101

REACTIONS (4)
  - DIABETES MELLITUS [None]
  - FEELING ABNORMAL [None]
  - PNEUMONIA [None]
  - TOE AMPUTATION [None]
